FAERS Safety Report 11058274 (Version 1)
Quarter: 2015Q2

REPORT INFORMATION
  Report Type: Spontaneous
  Country: US (occurrence: None)
  Receive Date: 20150420
  Receipt Date: 20150420
  Transmission Date: 20150821
  Serious: No
  Sender: FDA-Public Use
  Company Number: AEGR001152

PATIENT
  Age: 70 Year
  Sex: Female
  Weight: 90.7 kg

DRUGS (10)
  1. CARVEDILOL (CARVEDILOL) [Concomitant]
     Active Substance: CARVEDILOL
  2. JUXTAPID [Suspect]
     Active Substance: LOMITAPIDE MESYLATE
     Indication: TYPE IIA HYPERLIPIDAEMIA
     Route: 048
     Dates: start: 20150122, end: 20150312
  3. ASPIRIN (ACETYLSALICYLIC ACID) [Concomitant]
     Active Substance: ASPIRIN
  4. VITAMIN E (TOCOPHERYL ACETATE) [Concomitant]
  5. COQ10 (UBIDECARENONE) [Concomitant]
     Active Substance: UBIDECARENONE
  6. PLAVIX (CLOPIDOGREL BISULFATE) [Concomitant]
  7. TYLENOL [Concomitant]
     Active Substance: ACETAMINOPHEN
  8. DOXAZOCIN (DOCAZOCIN MESILATE) [Concomitant]
  9. PRAVASTATIN [Suspect]
     Active Substance: PRAVASTATIN\PRAVASTATIN SODIUM
     Indication: PRODUCT USED FOR UNKNOWN INDICATION
  10. FLONASE (FLOUTICASONE PROPIONATE) [Concomitant]

REACTIONS (3)
  - Pain [None]
  - Myalgia [None]
  - Therapy cessation [None]

NARRATIVE: CASE EVENT DATE: 201501
